FAERS Safety Report 21811704 (Version 1)
Quarter: 2023Q1

REPORT INFORMATION
  Report Type: Spontaneous
  Country: US (occurrence: US)
  Receive Date: 20230103
  Receipt Date: 20230103
  Transmission Date: 20230417
  Serious: No
  Sender: FDA-Public Use
  Company Number: US-BAYER-2022P034484

PATIENT
  Age: 32 Year
  Sex: Female

DRUGS (1)
  1. SKYLA [Suspect]
     Active Substance: LEVONORGESTREL
     Indication: Intrauterine contraception
     Dosage: 14?G/DAY
     Route: 015
     Dates: start: 202110

REACTIONS (4)
  - Dermatitis atopic [Not Recovered/Not Resolved]
  - Asthma [Recovering/Resolving]
  - Dermatitis allergic [Not Recovered/Not Resolved]
  - Device use error [None]
